FAERS Safety Report 8722723 (Version 2)
Quarter: 2012Q4

REPORT INFORMATION
  Report Type: 
  Country: US (occurrence: US)
  Receive Date: 20120814
  Receipt Date: 20121011
  Transmission Date: 20130627
  Serious: Yes (Death)
  Sender: FDA-Public Use
  Company Number: US-ROCHE-1100890

PATIENT
  Sex: Female

DRUGS (7)
  1. ACTIVASE [Suspect]
     Indication: MYOCARDIAL INFARCTION
  2. LIDOCAIN [Concomitant]
  3. CALAN [Concomitant]
  4. DIGOXIN [Concomitant]
  5. HEPARIN [Concomitant]
  6. INTROPIN [Concomitant]
  7. VALIUM [Concomitant]

REACTIONS (1)
  - Death [Fatal]
